FAERS Safety Report 21653078 (Version 8)
Quarter: 2023Q1

REPORT INFORMATION
  Report Type: Report from Study
  Country: FR (occurrence: FR)
  Receive Date: 20221128
  Receipt Date: 20230327
  Transmission Date: 20230418
  Serious: Yes (Hospitalization, Other)
  Sender: FDA-Public Use
  Company Number: FR-GILEAD-2022-0606454

PATIENT
  Sex: Female
  Weight: 65 kg

DRUGS (20)
  1. SACITUZUMAB GOVITECAN-HZIY [Suspect]
     Active Substance: SACITUZUMAB GOVITECAN-HZIY
     Indication: Triple negative breast cancer
     Dosage: 10 MG/KG, CYCLE 1, DAY 1
     Route: 042
     Dates: start: 20211125
  2. SACITUZUMAB GOVITECAN-HZIY [Suspect]
     Active Substance: SACITUZUMAB GOVITECAN-HZIY
     Dosage: 10 MG/KG, CYCLE 2, DAY 1, 8
     Route: 042
     Dates: start: 20211216, end: 20211223
  3. SACITUZUMAB GOVITECAN-HZIY [Suspect]
     Active Substance: SACITUZUMAB GOVITECAN-HZIY
     Dosage: 10 MG/KG, CYCLE 3, DAY 1, 8
     Route: 042
     Dates: start: 20220106, end: 20220113
  4. SACITUZUMAB GOVITECAN-HZIY [Suspect]
     Active Substance: SACITUZUMAB GOVITECAN-HZIY
     Dosage: 10 MG/KG, CYCLE 4, DAY 1, 8
     Route: 042
     Dates: start: 20220127, end: 20220203
  5. SACITUZUMAB GOVITECAN-HZIY [Suspect]
     Active Substance: SACITUZUMAB GOVITECAN-HZIY
     Dosage: 10 MG/KG, CYCLE 5, DAY 1, 8
     Route: 042
     Dates: start: 20220217, end: 20220224
  6. SACITUZUMAB GOVITECAN-HZIY [Suspect]
     Active Substance: SACITUZUMAB GOVITECAN-HZIY
     Dosage: 10 MG/KG, CYCLE 6, DAY 1, 8
     Route: 042
     Dates: start: 20220401, end: 20220411
  7. SACITUZUMAB GOVITECAN-HZIY [Suspect]
     Active Substance: SACITUZUMAB GOVITECAN-HZIY
     Dosage: 10 MG/KG, CYCLE 7, DAY 1, 8
     Route: 042
     Dates: start: 20220425, end: 20220502
  8. SACITUZUMAB GOVITECAN-HZIY [Suspect]
     Active Substance: SACITUZUMAB GOVITECAN-HZIY
     Dosage: 10 MG/KG, CYCLE 8, DAY 1, 8
     Route: 042
     Dates: start: 20220516, end: 20220523
  9. SACITUZUMAB GOVITECAN-HZIY [Suspect]
     Active Substance: SACITUZUMAB GOVITECAN-HZIY
     Dosage: 10 MG/KG, CYCLE 9, DAY 1, 8
     Route: 042
     Dates: start: 20220609, end: 20220616
  10. SACITUZUMAB GOVITECAN-HZIY [Suspect]
     Active Substance: SACITUZUMAB GOVITECAN-HZIY
     Dosage: 10 MG/KG, CYCLE 10, DAY 1
     Route: 042
     Dates: start: 20220630, end: 20220630
  11. SACITUZUMAB GOVITECAN-HZIY [Suspect]
     Active Substance: SACITUZUMAB GOVITECAN-HZIY
     Dosage: 10 MG/KG, CYCLE 11, DAY 1
     Route: 042
     Dates: start: 20220721, end: 20220728
  12. SACITUZUMAB GOVITECAN-HZIY [Suspect]
     Active Substance: SACITUZUMAB GOVITECAN-HZIY
     Dosage: 10 MG/KG, CYCLE 12, DAY 1
     Route: 042
     Dates: start: 20220811, end: 20220818
  13. SACITUZUMAB GOVITECAN-HZIY [Suspect]
     Active Substance: SACITUZUMAB GOVITECAN-HZIY
     Dosage: 10 MG/KG, CYCLE 13, DAY 1
     Route: 042
     Dates: start: 20220906, end: 20220913
  14. SACITUZUMAB GOVITECAN-HZIY [Suspect]
     Active Substance: SACITUZUMAB GOVITECAN-HZIY
     Dosage: 10 MG/KG, CYCLE 14, DAY 1
     Route: 042
     Dates: start: 20220927, end: 20221004
  15. SACITUZUMAB GOVITECAN-HZIY [Suspect]
     Active Substance: SACITUZUMAB GOVITECAN-HZIY
     Dosage: 10 MG/KG, CYCLE 15, DAY 1
     Route: 042
     Dates: start: 20221018, end: 20221025
  16. SACITUZUMAB GOVITECAN-HZIY [Suspect]
     Active Substance: SACITUZUMAB GOVITECAN-HZIY
     Dosage: 10 MG/KG, CYCLE 16, DAY 1
     Route: 042
     Dates: start: 20221108, end: 20221115
  17. SACITUZUMAB GOVITECAN-HZIY [Suspect]
     Active Substance: SACITUZUMAB GOVITECAN-HZIY
     Dosage: 10 MG/KG C17D1 (D8 NOT DONE)
     Route: 042
     Dates: start: 20221129
  18. SACITUZUMAB GOVITECAN-HZIY [Suspect]
     Active Substance: SACITUZUMAB GOVITECAN-HZIY
     Dosage: 10 MG/KG ON C18D1/D8
     Route: 042
     Dates: start: 20221220, end: 20221227
  19. SACITUZUMAB GOVITECAN-HZIY [Suspect]
     Active Substance: SACITUZUMAB GOVITECAN-HZIY
     Dosage: 10 MG/KG ON C20D1/D8
     Route: 042
     Dates: start: 20230217, end: 20230224
  20. SACITUZUMAB GOVITECAN-HZIY [Suspect]
     Active Substance: SACITUZUMAB GOVITECAN-HZIY
     Dosage: 10 MG/KG ON C22D1/D8
     Route: 042
     Dates: start: 20230309, end: 20230316

REACTIONS (19)
  - Respiratory distress [Recovered/Resolved]
  - COVID-19 [Recovered/Resolved]
  - Aphasia [Recovered/Resolved]
  - Pyelonephritis [Unknown]
  - Bladder disorder [Unknown]
  - Pyrexia [Unknown]
  - Exercise tolerance decreased [Unknown]
  - Gait disturbance [Unknown]
  - Loss of personal independence in daily activities [Unknown]
  - Memory impairment [Unknown]
  - Pain [Unknown]
  - Asthenia [Unknown]
  - Vomiting [Unknown]
  - Diarrhoea [Unknown]
  - Fatigue [Unknown]
  - Inappropriate schedule of product administration [Unknown]
  - Off label use [Unknown]
  - Off label use [Unknown]
  - Off label use [Unknown]

NARRATIVE: CASE EVENT DATE: 20220311
